FAERS Safety Report 5635509-6 (Version None)
Quarter: 2008Q1

REPORT INFORMATION
  Report Type: 
  Country: None (occurrence: None)
  Receive Date: 20080222
  Receipt Date: 20080215
  Transmission Date: 20080703
  Serious: Yes (Hospitalization)
  Sender: FDA-Public Use
  Company Number: JP-BAYER-200810282BYL

PATIENT
  Age: 70 Year
  Sex: Female

DRUGS (1)
  1. FLUDARA [Suspect]
     Indication: NON-HODGKIN'S LYMPHOMA
     Dosage: UNIT DOSE: 10 MG
     Route: 048
     Dates: start: 20080201, end: 20080205

REACTIONS (1)
  - NAUSEA [None]
